FAERS Safety Report 20922428 (Version 2)
Quarter: 2022Q3

REPORT INFORMATION
  Report Type: Spontaneous
  Country: US (occurrence: US)
  Receive Date: 20220607
  Receipt Date: 20220719
  Transmission Date: 20221026
  Serious: No
  Sender: FDA-Public Use
  Company Number: US-GSKCCFUS-Case-01396072_AE-80472

PATIENT
  Age: 29 Year
  Sex: Female

DRUGS (1)
  1. NUCALA [Suspect]
     Active Substance: MEPOLIZUMAB
     Indication: Product used for unknown indication
     Dosage: 100 MG/ML
     Dates: start: 20220601

REACTIONS (5)
  - Exposure via skin contact [Unknown]
  - Device use error [Unknown]
  - Underdose [Unknown]
  - Accidental exposure to product [Unknown]
  - Product complaint [Unknown]

NARRATIVE: CASE EVENT DATE: 20220601
